FAERS Safety Report 7330644-9 (Version None)
Quarter: 2011Q1

REPORT INFORMATION
  Report Type: 
  Country: None (occurrence: None)
  Receive Date: 20110304
  Receipt Date: 20110209
  Transmission Date: 20110831
  Serious: Yes (Other)
  Sender: FDA-Public Use
  Company Number: US-RB-017031-10

PATIENT
  Age: 60 Year
  Sex: Female

DRUGS (2)
  1. MUCINEX [Suspect]
  2. MUCINEX [Suspect]
     Indication: COUGH

REACTIONS (5)
  - HYPERTENSION [None]
  - FLUSHING [None]
  - DYSPNOEA [None]
  - DISORIENTATION [None]
  - DIZZINESS [None]
